FAERS Safety Report 18362253 (Version 4)
Quarter: 2020Q4

REPORT INFORMATION
  Report Type: Report from Study
  Country: US (occurrence: US)
  Receive Date: 20201008
  Receipt Date: 20201128
  Transmission Date: 20210114
  Serious: Yes (Other)
  Sender: FDA-Public Use
  Company Number: NVSC2020US264625

PATIENT
  Sex: Female

DRUGS (2)
  1. ENTRESTO [Suspect]
     Active Substance: SACUBITRIL\VALSARTAN
     Dosage: 50 MG, TID (TAKING TWO TABS OF 24/26 IN AM (STILL ONLY TAKES ONE TAB IN PM)
     Route: 065
  2. ENTRESTO [Suspect]
     Active Substance: SACUBITRIL\VALSARTAN
     Indication: PRODUCT USED FOR UNKNOWN INDICATION
     Dosage: 50 MG, BID
     Route: 048
     Dates: start: 20200925

REACTIONS (9)
  - Feeling abnormal [Unknown]
  - Cardiomyopathy [Unknown]
  - Thirst [Unknown]
  - Blood pressure decreased [Unknown]
  - Arteriosclerosis [Unknown]
  - Bacterial infection [Unknown]
  - Inappropriate schedule of product administration [Unknown]
  - Sluggishness [Recovering/Resolving]
  - Abnormal faeces [Recovering/Resolving]
